FAERS Safety Report 6943004-7 (Version None)
Quarter: 2010Q3

REPORT INFORMATION
  Report Type: 
  Country: None (occurrence: None)
  Receive Date: 20100826
  Receipt Date: 20100819
  Transmission Date: 20110219
  Serious: Yes (Other)
  Sender: FDA-Public Use
  Company Number: GB-TEVA-245668ISR

PATIENT
  Sex: Male

DRUGS (3)
  1. CISPLATIN [Suspect]
     Indication: LUNG NEOPLASM MALIGNANT
     Route: 042
     Dates: start: 20090717
  2. VINORELBINE [Suspect]
     Indication: LUNG NEOPLASM MALIGNANT
     Route: 048
     Dates: start: 20090724
  3. VINORELBINE [Suspect]
     Route: 042
     Dates: start: 20090717, end: 20090717

REACTIONS (7)
  - DIARRHOEA [None]
  - EXTRAVASATION [None]
  - MENTAL DISORDER [None]
  - OVERDOSE [None]
  - SCAR [None]
  - VEIN PAIN [None]
  - VOMITING [None]
